FAERS Safety Report 7796226-X (Version None)
Quarter: 2011Q4

REPORT INFORMATION
  Report Type: 
  Country: None (occurrence: None)
  Receive Date: 20111004
  Receipt Date: 20110926
  Transmission Date: 20120403
  Serious: Yes (Disabling)
  Sender: FDA-Public Use
  Company Number: US-US-EMD SERONO, INC.-7084356

PATIENT
  Sex: Male
  Weight: 108 kg

DRUGS (4)
  1. LISINOPRIL [Concomitant]
     Indication: DYSLIPIDAEMIA
  2. REBIF [Suspect]
     Indication: MULTIPLE SCLEROSIS
     Route: 058
     Dates: start: 20070901
  3. ERGOCALCIFEROL [Concomitant]
     Indication: VITAMIN D DEFICIENCY
  4. CYMBALTA [Concomitant]
     Indication: PARAESTHESIA
     Dates: start: 20110328

REACTIONS (4)
  - PAIN IN EXTREMITY [None]
  - MULTIPLE SCLEROSIS [None]
  - MUSCULOSKELETAL PAIN [None]
  - EYE DISORDER [None]
